FAERS Safety Report 4372566-1 (Version None)
Quarter: 2004Q2

REPORT INFORMATION
  Report Type: 
  Country: None (occurrence: None)
  Receive Date: 20040526
  Receipt Date: 20040514
  Transmission Date: 20050107
  Serious: Yes (Death)
  Sender: FDA-Public Use
  Company Number: USA-2002-0002700

PATIENT
  Age: 39 Year
  Sex: Male

DRUGS (3)
  1. OXYCONTIN [Suspect]
     Indication: PAIN
     Dates: end: 20010914
  2. GABAPENTIN [Concomitant]
  3. TRAZODONE HCL [Concomitant]

REACTIONS (2)
  - MALAISE [None]
  - URINARY INCONTINENCE [None]
